FAERS Safety Report 24349529 (Version 5)
Quarter: 2025Q3

REPORT INFORMATION
  Report Type: Spontaneous
  Country: US (occurrence: US)
  Receive Date: 20240923
  Receipt Date: 20250801
  Transmission Date: 20251020
  Serious: Yes (Life-Threatening, Hospitalization, Other)
  Sender: SANOFI AVENTIS
  Company Number: US-SA-2024SA271678

PATIENT
  Age: 41 Year
  Sex: Male
  Weight: 86 kg

DRUGS (19)
  1. DUPIXENT [Suspect]
     Active Substance: DUPILUMAB
     Indication: Dermatitis atopic
     Dosage: 300 MG, QOW
     Route: 058
     Dates: end: 20240914
  2. ADBRY [Concomitant]
     Active Substance: TRALOKINUMAB-LDRM
     Route: 058
  3. KETOCONAZOLE [Concomitant]
     Active Substance: KETOCONAZOLE
     Route: 061
  4. FOLIC ACID [Concomitant]
     Active Substance: FOLIC ACID
     Route: 048
  5. ERYTHROMYCIN AND BENZOYL PEROXIDE [Concomitant]
     Active Substance: BENZOYL PEROXIDE\ERYTHROMYCIN
     Route: 061
  6. SULFACETAMIDE SODIUM;SULFUR;UREA [Concomitant]
     Route: 061
  7. TACROLIMUS [Concomitant]
     Active Substance: TACROLIMUS
     Dosage: BID*12 WEEKS
     Route: 061
  8. DIFLUCAN [Concomitant]
     Active Substance: FLUCONAZOLE
     Route: 048
  9. METHOTREXATE SODIUM [Concomitant]
     Active Substance: METHOTREXATE SODIUM
     Route: 048
  10. BENZOYL PEROXIDE\CLINDAMYCIN [Concomitant]
     Active Substance: BENZOYL PEROXIDE\CLINDAMYCIN
     Route: 061
  11. CLOBETASOL [Concomitant]
     Active Substance: CLOBETASOL
  12. MUPIROCIN [Concomitant]
     Active Substance: MUPIROCIN
     Dosage: BID
     Route: 061
  13. CLOBETASOL [Concomitant]
     Active Substance: CLOBETASOL
     Dosage: BID*2 WEEKS, PRN
     Route: 061
  14. KETOCONAZOLE [Concomitant]
     Active Substance: KETOCONAZOLE
     Route: 061
  15. CLINDAMYCIN PHOSPHATE [Concomitant]
     Active Substance: CLINDAMYCIN PHOSPHATE
     Dosage: QD
     Route: 061
  16. FLUCONAZOLE [Concomitant]
     Active Substance: FLUCONAZOLE
     Route: 048
  17. BENZOYL PEROXIDE [Concomitant]
     Active Substance: BENZOYL PEROXIDE
  18. DOXYCYCLINE HYCLATE [Concomitant]
     Active Substance: DOXYCYCLINE HYCLATE
  19. SULFACETAMIDE SODIUM;SULFUR;UREA [Concomitant]
     Route: 061

REACTIONS (7)
  - Pulmonary oedema [Recovered/Resolved]
  - Pulmonary fibrosis [Recovered/Resolved]
  - Drug hypersensitivity [Unknown]
  - Fatigue [Unknown]
  - Chest discomfort [Unknown]
  - Diarrhoea [Unknown]
  - Drug ineffective [Unknown]

NARRATIVE: CASE EVENT DATE: 20240801
